FAERS Safety Report 18453820 (Version 1)
Quarter: 2020Q4

REPORT INFORMATION
  Report Type: Report from Study
  Country: ES (occurrence: ES)
  Receive Date: 20201102
  Receipt Date: 20201102
  Transmission Date: 20210114
  Serious: Yes (Hospitalization, Other)
  Sender: FDA-Public Use
  Company Number: ES-BRISTOL-MYERS SQUIBB COMPANY-BMS-2020-046939

PATIENT
  Age: 59 Year
  Sex: Male

DRUGS (10)
  1. URELUMAB [Suspect]
     Active Substance: URELUMAB
     Indication: ADRENAL GLAND CANCER
     Dosage: 8 MILLIGRAM, Q4WK
     Route: 037
     Dates: start: 20200522, end: 20200522
  2. CARVEDILOL. [Concomitant]
     Active Substance: CARVEDILOL
     Dosage: 12.5 MICROGRAM, Q12H
     Route: 048
  3. NIVOLUMAB [Suspect]
     Active Substance: NIVOLUMAB
     Dosage: 240 MILLIGRAM, QD
     Route: 042
     Dates: start: 20200603, end: 20200603
  4. NIVOLUMAB [Suspect]
     Active Substance: NIVOLUMAB
     Dosage: 480 MILLIGRAM, Q4WK
     Route: 042
     Dates: start: 20200716, end: 20200826
  5. EUTIROX [Concomitant]
     Active Substance: LEVOTHYROXINE SODIUM
     Indication: HYPOTENSION
     Dosage: 500 MICROGRAM, QD
     Route: 065
     Dates: start: 20190603
  6. CARVEDILOL. [Concomitant]
     Active Substance: CARVEDILOL
     Indication: HYPERTENSION
     Dosage: 25 MILLIGRAM, QD
     Route: 048
     Dates: start: 20200522
  7. CRESTOR [Concomitant]
     Active Substance: ROSUVASTATIN CALCIUM
     Indication: HYPERCHOLESTEROLAEMIA
     Dosage: 10 MILLIGRAM, QD
     Route: 048
     Dates: start: 20190603
  8. NIVOLUMAB [Suspect]
     Active Substance: NIVOLUMAB
     Indication: ADRENAL GLAND CANCER
     Dosage: 240 MILLIGRAM, QD
     Route: 042
     Dates: start: 20200605, end: 20200605
  9. AMLODIPINE;VALSARTAN [Concomitant]
     Active Substance: AMLODIPINE\VALSARTAN
     Indication: HYPERTENSION
     Dosage: 10 / 320 MILLIGRAM, QD
     Route: 048
     Dates: start: 20200225
  10. HYDROCORTISONE. [Concomitant]
     Active Substance: HYDROCORTISONE
     Indication: ADRENAL INSUFFICIENCY
     Dosage: 40 MILLIGRAM, QD
     Route: 048
     Dates: start: 20170601

REACTIONS (2)
  - Rash maculo-papular [Recovered/Resolved]
  - Febrile neutropenia [Recovered/Resolved]

NARRATIVE: CASE EVENT DATE: 20200610
